FAERS Safety Report 9844819 (Version 3)
Quarter: 2014Q3

REPORT INFORMATION
  Report Type: Report from Study
  Country: US (occurrence: US)
  Receive Date: 20140127
  Receipt Date: 20140923
  Transmission Date: 20150326
  Serious: Yes (Hospitalization, Other)
  Sender: FDA-Public Use
  Company Number: US-SA-2014SA009079

PATIENT
  Age: 71 Year
  Sex: Female

DRUGS (6)
  1. SOLOSTAR [Concomitant]
     Active Substance: DEVICE
     Indication: TYPE 2 DIABETES MELLITUS
  2. LANTUS SOLOSTAR [Suspect]
     Active Substance: INSULIN GLARGINE
     Indication: TYPE 2 DIABETES MELLITUS
     Dosage: TAKEN FROM: 4-5 YEARS AGO. DOSE:20 UNIT(S)
     Route: 058
  3. LANTUS SOLOSTAR [Suspect]
     Active Substance: INSULIN GLARGINE
     Indication: TYPE 2 DIABETES MELLITUS
     Dosage: DOSE:45 UNIT(S)
     Route: 065
     Dates: start: 20140224
  4. LANTUS SOLOSTAR [Suspect]
     Active Substance: INSULIN GLARGINE
     Indication: TYPE 2 DIABETES MELLITUS
     Dosage: DOSE:15 UNIT(S)
     Route: 065
     Dates: end: 20140224
  5. LEVEMIR [Suspect]
     Active Substance: INSULIN DETEMIR
     Route: 065
  6. COUMADIN [Suspect]
     Active Substance: WARFARIN SODIUM
     Route: 065

REACTIONS (10)
  - Pulmonary haemorrhage [Unknown]
  - Urinary bladder haemorrhage [Unknown]
  - Weight decreased [Unknown]
  - Aortic aneurysm [Unknown]
  - Knee operation [Unknown]
  - Nephrolithiasis [Unknown]
  - Hypertension [Unknown]
  - Blood glucose increased [Unknown]
  - Pain [Unknown]
  - Glycosylated haemoglobin increased [Unknown]
